FAERS Safety Report 21118390 (Version 1)
Quarter: 2022Q3

REPORT INFORMATION
  Report Type: Spontaneous
  Country: US (occurrence: None)
  Receive Date: 20220721
  Receipt Date: 20220721
  Transmission Date: 20221027
  Serious: Yes (Death)
  Sender: FDA-Public Use
  Company Number: None

PATIENT
  Age: 69 Year
  Sex: Male

DRUGS (1)
  1. RETACRIT [Suspect]
     Active Substance: EPOETIN ALFA-EPBX
     Dosage: OTHER QUANTITY : 10,000 UNITS;?OTHER FREQUENCY : OTHER;?
     Route: 058
     Dates: start: 202201, end: 202201

REACTIONS (1)
  - Death [None]

NARRATIVE: CASE EVENT DATE: 20220626
